FAERS Safety Report 12946902 (Version 3)
Quarter: 2017Q2

REPORT INFORMATION
  Report Type: Spontaneous
  Country: US (occurrence: US)
  Receive Date: 20161116
  Receipt Date: 20170619
  Transmission Date: 20170830
  Serious: Yes (Other)
  Sender: FDA-Public Use
  Company Number: US-PFIZER INC-2016394137

PATIENT
  Age: 74 Year
  Sex: Female
  Weight: 99.79 kg

DRUGS (13)
  1. LOTREL [Concomitant]
     Active Substance: AMLODIPINE BESYLATE\BENAZEPRIL HYDROCHLORIDE
     Dosage: AMLODIPINE BESILATE 5MG, BENAZEPRIL HYDROCHLORIDE 20 MG
  2. LEVOTHROID [Concomitant]
     Active Substance: LEVOTHYROXINE SODIUM
     Dosage: 50 UG, UNK
  3. VITAMIN B12 [Concomitant]
     Active Substance: CYANOCOBALAMIN
     Dosage: 2500 UG, UNK
  4. XGEVA [Concomitant]
     Active Substance: DENOSUMAB
     Dosage: (120 MG/1.7 ML (70 MG/ML) SOLN)
  5. IBRANCE [Suspect]
     Active Substance: PALBOCICLIB
     Indication: BREAST CANCER METASTATIC
     Dosage: 125 MG, CYCLIC (DAILY FOR 21 CONSECUTIVE DAYS FOLLOWED BY 7 DAYS OFF)
     Route: 048
  6. IBRANCE [Suspect]
     Active Substance: PALBOCICLIB
     Dosage: 125 MG, CYCLIC [21 DAYS AND OFF FOR 7 DAYS]
     Dates: start: 2015
  7. CALCIUM 600+D3 [Concomitant]
     Active Substance: CALCIUM CARBONATE\VITAMIN D
     Dosage: (CALCIUM CARBONATE 600 MG, COLECALCIFEROL 1500 MG)
  8. PERCOCET [Concomitant]
     Active Substance: ACETAMINOPHEN\OXYCODONE HYDROCHLORIDE
     Dosage: (OXYCODONE 5 -  ACETAMINOPHEN 325)
  9. ATIVAN [Concomitant]
     Active Substance: LORAZEPAM
     Dosage: 0.5 MG, UNK
  10. IBRANCE [Suspect]
     Active Substance: PALBOCICLIB
     Indication: BREAST CANCER
     Dosage: UNK
     Dates: end: 201705
  11. ELIQUIS [Concomitant]
     Active Substance: APIXABAN
     Dosage: 5 MG, UNK
  12. FEMARA [Concomitant]
     Active Substance: LETROZOLE
     Dosage: 2.5 MG, UNK
  13. VITAMIN D [Concomitant]
     Active Substance: CHOLECALCIFEROL
     Dosage: UNK

REACTIONS (11)
  - Tooth fracture [Unknown]
  - Bone loss [Unknown]
  - Back pain [Recovering/Resolving]
  - Alopecia [Unknown]
  - Pain in extremity [Unknown]
  - Thrombosis [Unknown]
  - Lower limb fracture [Unknown]
  - Abasia [Unknown]
  - Arthralgia [Unknown]
  - Neoplasm progression [Unknown]
  - Pain [Unknown]

NARRATIVE: CASE EVENT DATE: 20170613
